FAERS Safety Report 18129666 (Version 1)
Quarter: 2020Q3

REPORT INFORMATION
  Report Type: Spontaneous
  Country: US (occurrence: US)
  Receive Date: 20200810
  Receipt Date: 20200810
  Transmission Date: 20201103
  Serious: No
  Sender: FDA-Public Use
  Company Number: US-PERRIGO-19US010729

PATIENT
  Age: 14 Year
  Sex: Male
  Weight: 48.53 kg

DRUGS (2)
  1. LORATADINE. [Suspect]
     Active Substance: LORATADINE
     Dosage: 20 MG, SINGLE
     Route: 048
     Dates: start: 20190830, end: 20190830
  2. LORATADINE. [Suspect]
     Active Substance: LORATADINE
     Indication: PROPHYLAXIS
     Dosage: 10 MG, QD
     Route: 048
     Dates: start: 20190826

REACTIONS (2)
  - Somnolence [Unknown]
  - Off label use [Unknown]

NARRATIVE: CASE EVENT DATE: 20190826
